FAERS Safety Report 8472246-7 (Version None)
Quarter: 2012Q2

REPORT INFORMATION
  Report Type: 
  Country: None (occurrence: None)
  Receive Date: 20120627
  Receipt Date: 20120402
  Transmission Date: 20120825
  Serious: No
  Sender: FDA-Public Use
  Company Number: US-MYLANLABS-2012S1007166

PATIENT
  Sex: Female

DRUGS (3)
  1. METHOTREXATE [Suspect]
     Indication: VASCULITIS
     Route: 048
     Dates: start: 20120201
  2. METHOTREXATE [Suspect]
     Indication: DERMATOMYOSITIS
     Route: 048
     Dates: start: 20120201
  3. STEROIDS [Concomitant]

REACTIONS (5)
  - SENSITIVITY OF TEETH [None]
  - ALOPECIA [None]
  - BONE PAIN [None]
  - FATIGUE [None]
  - DIZZINESS [None]
